FAERS Safety Report 5728457-4 (Version None)
Quarter: 2008Q2

REPORT INFORMATION
  Report Type: 
  Country: None (occurrence: None)
  Receive Date: 20080506
  Receipt Date: 20080418
  Transmission Date: 20081010
  Serious: Yes (Life-Threatening, Hospitalization)
  Sender: FDA-Public Use
  Company Number: US-BAYER-200616256BWH

PATIENT
  Age: 63 Year
  Sex: Female
  Weight: 57 kg

DRUGS (23)
  1. SORAFENIB [Suspect]
     Indication: NON-SMALL CELL LUNG CANCER
     Dosage: TOTAL DAILY DOSE: 800 MG  UNIT DOSE: 200 MG
     Route: 048
     Dates: start: 20060718, end: 20060804
  2. SORAFENIB [Suspect]
     Dosage: TOTAL DAILY DOSE: 800 MG  UNIT DOSE: 200 MG
     Route: 048
     Dates: start: 20060906, end: 20060923
  3. SORAFENIB [Suspect]
     Dosage: TOTAL DAILY DOSE: 800 MG  UNIT DOSE: 200 MG
     Route: 048
     Dates: start: 20060808, end: 20060825
  4. SORAFENIB [Suspect]
     Dosage: TOTAL DAILY DOSE: 800 MG  UNIT DOSE: 200 MG
     Route: 048
     Dates: start: 20061004, end: 20061020
  5. CARBOPLATIN [Suspect]
     Indication: NON-SMALL CELL LUNG CANCER
     Route: 042
     Dates: start: 20061003, end: 20061003
  6. CARBOPLATIN [Suspect]
     Route: 042
     Dates: start: 20060905, end: 20060905
  7. CARBOPLATIN [Suspect]
     Route: 042
     Dates: start: 20060807, end: 20060807
  8. CARBOPLATIN [Suspect]
     Route: 042
     Dates: start: 20060717, end: 20060717
  9. PACLITAXEL [Suspect]
     Indication: NON-SMALL CELL LUNG CANCER
     Route: 042
     Dates: start: 20060905, end: 20060905
  10. PACLITAXEL [Suspect]
     Route: 042
     Dates: start: 20060807, end: 20060807
  11. PACLITAXEL [Suspect]
     Route: 042
     Dates: start: 20061003, end: 20061003
  12. PACLITAXEL [Suspect]
     Route: 042
     Dates: start: 20060717, end: 20060717
  13. SYNTHROID [Concomitant]
     Indication: HYPOTHYROIDISM
     Route: 048
     Dates: start: 20060101
  14. ZOCOR [Concomitant]
     Indication: BLOOD CHOLESTEROL INCREASED
     Route: 048
     Dates: start: 20060101
  15. VASOTEC [Concomitant]
     Indication: HYPERTENSION
     Route: 048
     Dates: start: 20060101
  16. ACTOS [Concomitant]
     Indication: DIABETES MELLITUS
     Route: 048
     Dates: start: 20060101
  17. IRON [Concomitant]
     Indication: ANAEMIA
     Route: 048
     Dates: start: 20060101
  18. GLUCOPHAGE [Concomitant]
     Indication: DIABETES MELLITUS
     Route: 048
     Dates: start: 20060101
  19. COMPAZINE [Concomitant]
     Indication: NAUSEA
     Route: 048
     Dates: start: 20060101
  20. AMBIEN [Concomitant]
     Indication: INSOMNIA
     Route: 048
     Dates: start: 20060101
  21. DEXAMETHASONE [Concomitant]
     Indication: PROPHYLACTIC CHEMOTHERAPY
  22. ZYRTEC [Concomitant]
     Indication: SEASONAL ALLERGY
     Route: 048
     Dates: start: 20060731
  23. ARANESP [Concomitant]
     Indication: ANAEMIA
     Route: 058
     Dates: start: 20060814

REACTIONS (2)
  - OCCULT BLOOD POSITIVE [None]
  - PANCYTOPENIA [None]
